FAERS Safety Report 7061434-2 (Version None)
Quarter: 2010Q4

REPORT INFORMATION
  Report Type: 
  Country: None (occurrence: None)
  Receive Date: 20101026
  Receipt Date: 20101015
  Transmission Date: 20110411
  Serious: Yes (Hospitalization)
  Sender: FDA-Public Use
  Company Number: JP-WYE-H16563210

PATIENT
  Sex: Female
  Weight: 49 kg

DRUGS (17)
  1. ENBREL [Suspect]
     Indication: RHEUMATOID ARTHRITIS
     Route: 058
     Dates: start: 20080807, end: 20100723
  2. LENDORMIN [Concomitant]
     Route: 048
     Dates: start: 20040407
  3. EURODIN [Concomitant]
     Route: 048
     Dates: start: 20040407
  4. SALAGEN [Concomitant]
     Route: 048
     Dates: start: 20071217
  5. GASMOTIN [Concomitant]
     Route: 048
     Dates: start: 20051207
  6. DEPAS [Concomitant]
     Route: 048
     Dates: start: 20060719
  7. PRIMPERAN [Concomitant]
     Route: 048
     Dates: start: 20060913
  8. FOLIAMIN [Concomitant]
     Route: 048
     Dates: start: 20070228
  9. PREDNISOLONE [Suspect]
     Dosage: 1-5 MG PER DAY
     Route: 048
     Dates: start: 20020218
  10. LOXONIN [Concomitant]
     Route: 048
     Dates: start: 20050608
  11. POLYCARBOPHIL CALCIUM [Concomitant]
     Route: 048
     Dates: start: 20060830
  12. GASTER [Concomitant]
     Route: 048
     Dates: start: 20020410
  13. VOLTAREN [Concomitant]
     Route: 048
     Dates: start: 20040407
  14. MUCOSTA [Concomitant]
     Route: 048
     Dates: start: 20040407
  15. PIPERACILLIN AND TAZOBACTAM [Suspect]
     Indication: PYELONEPHRITIS
     Route: 042
     Dates: start: 20100701, end: 20100723
  16. ETODOLAC [Suspect]
     Dosage: UNSPECIFIED
  17. RHEUMATREX [Suspect]
     Indication: RHEUMATOID ARTHRITIS
     Dosage: 6-8 MG PER WEEK
     Route: 048
     Dates: start: 20020218

REACTIONS (2)
  - DRUG INEFFECTIVE [None]
  - PYELONEPHRITIS [None]
